FAERS Safety Report 11858346 (Version 4)
Quarter: 2016Q2

REPORT INFORMATION
  Report Type: Spontaneous
  Country: CA (occurrence: CA)
  Receive Date: 20151222
  Receipt Date: 20160607
  Transmission Date: 20160815
  Serious: Yes (Life-Threatening, Hospitalization, Disabling, Other)
  Sender: FDA-Public Use
  Company Number: CA-009507513-1512CAN008419

PATIENT
  Sex: Male
  Weight: 47.5 kg

DRUGS (1)
  1. INTRON A [Suspect]
     Active Substance: INTERFERON ALFA-2B
     Indication: MYCOSIS FUNGOIDES
     Dosage: 6 MIU, MON, WED AND FRI
     Route: 058
     Dates: start: 2007, end: 201507

REACTIONS (5)
  - Pharyngeal cancer [Recovered/Resolved]
  - Pruritus [Unknown]
  - Cyanosis [Unknown]
  - Erythema [Unknown]
  - Ocular hyperaemia [Unknown]

NARRATIVE: CASE EVENT DATE: 2015
